FAERS Safety Report 7791722-3 (Version None)
Quarter: 2011Q4

REPORT INFORMATION
  Report Type: 
  Country: None (occurrence: None)
  Receive Date: 20111003
  Receipt Date: 20110921
  Transmission Date: 20120403
  Serious: Yes (Other)
  Sender: FDA-Public Use
  Company Number: US-BAYER-2011-089499

PATIENT
  Age: 18 Year
  Sex: Female

DRUGS (1)
  1. YAZ [Suspect]
     Dosage: UNK
     Dates: start: 20051101, end: 20061101

REACTIONS (4)
  - INJURY [None]
  - PAIN [None]
  - DYSPNOEA [None]
  - PULMONARY EMBOLISM [None]
